FAERS Safety Report 4520694-X (Version None)
Quarter: 2004Q4

REPORT INFORMATION
  Report Type: 
  Country: None (occurrence: None)
  Receive Date: 20041203
  Receipt Date: 20041119
  Transmission Date: 20050328
  Serious: Yes (Death, Life-Threatening, Hospitalization)
  Sender: FDA-Public Use
  Company Number: 105480ISR

PATIENT
  Age: 78 Year
  Sex: Male

DRUGS (3)
  1. FLUOROURACIL [Suspect]
     Indication: COLON CANCER
     Dosage: 4000 MILLIGRAM, INTRAVENOUS NOS
     Route: 042
     Dates: start: 20040303, end: 20040831
  2. IRINOTECAN HYDROCHLORIDE [Suspect]
     Dosage: 270 MILLIGRAM, INTRAVENOUS NOS
     Route: 042
     Dates: start: 20040831, end: 20040831
  3. CALCIUM FOLINATE [Suspect]
     Dosage: 700 MILLIGRAM, INTRAVENOUS NOS
     Route: 042
     Dates: start: 20040803, end: 20040803

REACTIONS (2)
  - DEHYDRATION [None]
  - DIARRHOEA [None]
